FAERS Safety Report 22142289 (Version 2)
Quarter: 2023Q2

REPORT INFORMATION
  Report Type: Report from Study
  Country: TW (occurrence: TW)
  Receive Date: 20230327
  Receipt Date: 20230404
  Transmission Date: 20230721
  Serious: Yes (Hospitalization, Other)
  Sender: FDA-Public Use
  Company Number: TW-GILEAD-2023-0621653

PATIENT
  Age: 68 Year
  Sex: Male

DRUGS (2)
  1. TENOFOVIR ALAFENAMIDE [Suspect]
     Active Substance: TENOFOVIR ALAFENAMIDE
     Indication: Hepatitis B
     Dosage: 25 MG
     Route: 048
     Dates: start: 2019, end: 202210
  2. TENOFOVIR ALAFENAMIDE [Suspect]
     Active Substance: TENOFOVIR ALAFENAMIDE
     Dosage: 25 MG
     Route: 048
     Dates: start: 20230311

REACTIONS (3)
  - Viral load increased [Unknown]
  - Abdominal distension [Unknown]
  - Product dose omission issue [Recovered/Resolved]
